FAERS Safety Report 14867591 (Version 1)
Quarter: 2018Q2

REPORT INFORMATION
  Report Type: Spontaneous
  Country: US (occurrence: US)
  Receive Date: 20180508
  Receipt Date: 20180508
  Transmission Date: 20180711
  Serious: Yes (Hospitalization, Other)
  Sender: FDA-Public Use
  Company Number: US-ASTRAZENECA-2018SE58943

PATIENT
  Age: 79 Year
  Sex: Male
  Weight: 67.1 kg

DRUGS (9)
  1. TRAVATAN [Concomitant]
     Active Substance: TRAVOPROST
     Indication: MACULAR DEGENERATION
     Route: 047
     Dates: start: 2013
  2. AZITHROMYCIN ANHYDROUS. [Concomitant]
     Active Substance: AZITHROMYCIN ANHYDROUS
     Indication: DRUG THERAPY
     Route: 048
     Dates: start: 201712
  3. BABY ASPIRIN [Concomitant]
     Active Substance: ASPIRIN
     Indication: DRUG THERAPY
     Route: 048
     Dates: start: 201605
  4. ATENOLOL. [Suspect]
     Active Substance: ATENOLOL
     Indication: PROPHYLAXIS
     Route: 048
     Dates: start: 201605
  5. ATORVASTATIN [Concomitant]
     Active Substance: ATORVASTATIN
     Indication: BLOOD CHOLESTEROL ABNORMAL
     Route: 048
     Dates: start: 201605
  6. OXYGEN. [Concomitant]
     Active Substance: OXYGEN
     Indication: DYSPNOEA
     Dosage: 1 AND ONE HALF LITERS AT NIGHT AND 2 LITERS AS NEEDED
     Route: 045
     Dates: start: 201708
  7. TUDORZA PRESSAIR [Suspect]
     Active Substance: ACLIDINIUM BROMIDE
     Indication: CHRONIC OBSTRUCTIVE PULMONARY DISEASE
     Route: 055
     Dates: start: 2016
  8. SYMBICORT [Suspect]
     Active Substance: BUDESONIDE\FORMOTEROL FUMARATE DIHYDRATE
     Indication: CHRONIC OBSTRUCTIVE PULMONARY DISEASE
     Dosage: 160/4.5 MCG 2 INHALATIONS TWICE A DAY
     Route: 055
     Dates: start: 201712
  9. PLAVIX [Concomitant]
     Active Substance: CLOPIDOGREL BISULFATE
     Indication: ANTICOAGULANT THERAPY
     Route: 048
     Dates: start: 201605

REACTIONS (8)
  - Chronic obstructive pulmonary disease [Not Recovered/Not Resolved]
  - Hepatocellular carcinoma [Not Recovered/Not Resolved]
  - Intentional product misuse [Not Recovered/Not Resolved]
  - Hypoxia [Not Recovered/Not Resolved]
  - Device malfunction [Unknown]
  - Sinusitis [Recovered/Resolved]
  - Dyspnoea [Recovered/Resolved]
  - Wrong technique in product usage process [Unknown]

NARRATIVE: CASE EVENT DATE: 2017
